FAERS Safety Report 8161774 (Version 5)
Quarter: 2015Q1

REPORT INFORMATION
  Report Type: Spontaneous
  Country: US (occurrence: None)
  Receive Date: 20110921
  Receipt Date: 20150226
  Transmission Date: 20150721
  Serious: Yes (Hospitalization, Other)
  Sender: FDA-Public Use
  Company Number: TPA2011A05763

PATIENT
  Age: 68 Year
  Sex: Male
  Weight: 112.3 kg

DRUGS (5)
  1. ACTOPLUS MET [Suspect]
     Active Substance: METFORMIN HYDROCHLORIDE\PIOGLITAZONE HYDROCHLORIDE
     Indication: DIABETES MELLITUS
     Dosage: 15 MG, 1 IN 1 D
     Dates: start: 20080720, end: 20100217
  2. AMARYL [Concomitant]
     Active Substance: GLIMEPIRIDE
  3. CYTOXAN [Concomitant]
     Active Substance: CYCLOPHOSPHAMIDE
  4. METFORMIN HYDROCHLORIDE. [Concomitant]
     Active Substance: METFORMIN HYDROCHLORIDE
  5. ACTOS [Suspect]
     Active Substance: PIOGLITAZONE HYDROCHLORIDE
     Indication: DIABETES MELLITUS
     Dosage: 15 MG/850 MG, 2 IN 1 D
     Dates: start: 20051006, end: 20080311

REACTIONS (8)
  - Pollakiuria [None]
  - Bladder cancer [None]
  - Dysuria [None]
  - Abdominal discomfort [None]
  - Bladder cancer recurrent [None]
  - Urinary tract infection [None]
  - Haematuria [None]
  - Bladder transitional cell carcinoma [None]

NARRATIVE: CASE EVENT DATE: 200905
